FAERS Safety Report 13651882 (Version 2)
Quarter: 2017Q3

REPORT INFORMATION
  Report Type: Spontaneous
  Country: US (occurrence: US)
  Receive Date: 20170614
  Receipt Date: 20170830
  Transmission Date: 20171127
  Serious: Yes (Other)
  Sender: FDA-Public Use
  Company Number: US-CELGENEUS-USA-20170601402

PATIENT
  Sex: Female
  Weight: 68.1 kg

DRUGS (2)
  1. VERDESO [Concomitant]
     Active Substance: DESONIDE
     Indication: PSORIASIS
     Route: 061
     Dates: start: 2012
  2. OTEZLA [Suspect]
     Active Substance: APREMILAST
     Indication: PSORIASIS
     Dosage: 60 MILLIGRAM
     Route: 048
     Dates: start: 20170419, end: 201706

REACTIONS (1)
  - Facial paralysis [Recovered/Resolved]

NARRATIVE: CASE EVENT DATE: 201705
